FAERS Safety Report 14786163 (Version 4)
Quarter: 2019Q3

REPORT INFORMATION
  Report Type: Spontaneous
  Country: PL (occurrence: PL)
  Receive Date: 20180420
  Receipt Date: 20190919
  Transmission Date: 20191004
  Serious: Yes (Other)
  Sender: FDA-Public Use
  Company Number: PHHY2017PL164873

PATIENT
  Age: 18 Month
  Sex: Male

DRUGS (9)
  1. CARBOPLATIN. [Suspect]
     Active Substance: CARBOPLATIN
     Indication: CHOROID PLEXUS CARCINOMA
     Dosage: UNK, CYCLIC (18 CYCLES OF CPT-SIOP PROTOCOL-BASED CHEMOTHERAPY, DOSE REDUCTION AFTER 10 CYCLES)
     Route: 065
  2. CARBOPLATIN. [Suspect]
     Active Substance: CARBOPLATIN
     Dosage: UNK UKN, CYCLIC (10 CYCLICAL)
     Route: 065
  3. VINCRISTINE [Suspect]
     Active Substance: VINCRISTINE
     Dosage: UNK UKN, CYCLIC (8 CYCLICAL)
     Route: 065
  4. ETOPOSIDE. [Suspect]
     Active Substance: ETOPOSIDE
     Dosage: UNK UKN, (8 CYCLIC)
     Route: 065
  5. ETOPOSIDE. [Suspect]
     Active Substance: ETOPOSIDE
     Dosage: UNK UKN, CYCLIC (10 CYCLICAL)
     Route: 065
  6. CARBOPLATIN. [Suspect]
     Active Substance: CARBOPLATIN
     Dosage: UNK UKN, CYCLIC (8 CYCLICAL)
     Route: 065
  7. VINCRISTINE [Suspect]
     Active Substance: VINCRISTINE
     Indication: CHOROID PLEXUS CARCINOMA
     Dosage: UNK, CYCLIC (18 CYCLES OF CPT-SIOP PROTOCOL-BASED CHEMOTHERAPY, DOSE REDUCTION AFTER 10 CYCLES)
     Route: 065
  8. ETOPOSIDE. [Suspect]
     Active Substance: ETOPOSIDE
     Indication: CHOROID PLEXUS CARCINOMA
     Dosage: UNK, CYCLIC (18 CYCLES OF CPT-SIOP PROTOCOL-BASED CHEMOTHERAPY, DOSE REDUCTION AFTER 10 CYCLES)
     Route: 065
  9. VINCRISTINE [Suspect]
     Active Substance: VINCRISTINE
     Dosage: UNK UKN, CYCLIC (10 CYCLICAL)
     Route: 065

REACTIONS (4)
  - Deafness neurosensory [Unknown]
  - Product use in unapproved indication [Unknown]
  - Bone marrow failure [Recovered/Resolved]
  - Toxicity to various agents [Unknown]
